FAERS Safety Report 25134901 (Version 2)
Quarter: 2025Q2

REPORT INFORMATION
  Report Type: Spontaneous
  Country: US (occurrence: US)
  Receive Date: 20250328
  Receipt Date: 20250618
  Transmission Date: 20250716
  Serious: No
  Sender: CURIUM PHARMACEUTICALS
  Company Number: US-CURIUM-2025000173

PATIENT
  Age: 41 Year
  Sex: Female

DRUGS (1)
  1. DETECTNET [Suspect]
     Active Substance: COPPER OXODOTREOTIDE CU-64
     Indication: Pancreatic neuroendocrine tumour
     Route: 042
     Dates: start: 20250214, end: 20250214

REACTIONS (2)
  - Radioisotope scan abnormal [Recovered/Resolved]
  - Drug ineffective [Recovered/Resolved]

NARRATIVE: CASE EVENT DATE: 20250214
